FAERS Safety Report 21970838 (Version 2)
Quarter: 2023Q1

REPORT INFORMATION
  Report Type: Spontaneous
  Country: BE (occurrence: BE)
  Receive Date: 20230209
  Receipt Date: 20230217
  Transmission Date: 20230418
  Serious: Yes (Life-Threatening, Hospitalization, Other)
  Sender: FDA-Public Use
  Company Number: BE-SUN PHARMACEUTICAL INDUSTRIES LTD-2023R1-377127

PATIENT
  Age: 79 Year
  Sex: Female

DRUGS (1)
  1. LITHIUM [Suspect]
     Active Substance: LITHIUM
     Indication: Atrioventricular block
     Dosage: 400 MILLIGRAM, OD
     Route: 065

REACTIONS (6)
  - Bradyarrhythmia [Recovered/Resolved]
  - Atrioventricular block complete [Recovered/Resolved]
  - Mitral valve incompetence [Recovered/Resolved]
  - Toxicity to various agents [Recovered/Resolved]
  - Hypovolaemic shock [Recovered/Resolved]
  - Accidental overdose [Unknown]
